FAERS Safety Report 6427599-8 (Version None)
Quarter: 2009Q4

REPORT INFORMATION
  Report Type: 
  Country: None (occurrence: None)
  Receive Date: 20091104
  Receipt Date: 20091027
  Transmission Date: 20100525
  Serious: Yes (Other)
  Sender: FDA-Public Use
  Company Number: BR-PFIZER INC-2009278432

PATIENT
  Age: 39 Year
  Sex: Male

DRUGS (1)
  1. CELEBRA [Suspect]
     Indication: OSTEOARTHRITIS
     Dosage: UNK
     Route: 048
     Dates: start: 20090922, end: 20090928

REACTIONS (12)
  - DECREASED APPETITE [None]
  - DIZZINESS [None]
  - DYSPEPSIA [None]
  - EYE PAIN [None]
  - FATIGUE [None]
  - GASTROOESOPHAGEAL REFLUX DISEASE [None]
  - HYPERSENSITIVITY [None]
  - LETHARGY [None]
  - MALAISE [None]
  - NAUSEA [None]
  - OESOPHAGEAL OBSTRUCTION [None]
  - SOMNOLENCE [None]
